FAERS Safety Report 17132771 (Version 1)
Quarter: 2019Q4

REPORT INFORMATION
  Report Type: Spontaneous
  Country: US (occurrence: US)
  Receive Date: 20191210
  Receipt Date: 20191210
  Transmission Date: 20200122
  Serious: No
  Sender: FDA-Public Use
  Company Number: US-GLAXOSMITHKLINE-US2019218756

PATIENT
  Age: 65 Year
  Sex: Female

DRUGS (1)
  1. ANORO ELLIPTA [Suspect]
     Active Substance: UMECLIDINIUM BROMIDE\VILANTEROL TRIFENATATE
     Indication: CHRONIC OBSTRUCTIVE PULMONARY DISEASE
     Dosage: 1 PUFF(S), 1D
     Route: 055
     Dates: start: 20191129

REACTIONS (6)
  - Productive cough [Unknown]
  - Sputum discoloured [Unknown]
  - Dysgeusia [Unknown]
  - Retching [Unknown]
  - Product taste abnormal [Unknown]
  - Viral infection [Unknown]

NARRATIVE: CASE EVENT DATE: 20191129
